FAERS Safety Report 13269888 (Version 2)
Quarter: 2017Q1

REPORT INFORMATION
  Report Type: Spontaneous
  Country: US (occurrence: US)
  Receive Date: 20170224
  Receipt Date: 20170328
  Transmission Date: 20170428
  Serious: Yes (Hospitalization)
  Sender: FDA-Public Use
  Company Number: US-IMPAX LABORATORIES, INC-2017-IPXL-00370

PATIENT
  Age: 19 Year
  Sex: Female

DRUGS (5)
  1. ADRENACLICK [Suspect]
     Active Substance: EPINEPHRINE
     Indication: IRRIGATION THERAPY
     Dosage: 0.3 MG/L ( (1.5 ML OF 1:1000 [1 MG/ML] EPINEPHRINE MIXED INTO 5 L OF SALINE SOLUTION)
     Route: 058
  2. BUPIVACAINE. [Suspect]
     Active Substance: BUPIVACAINE
     Indication: PRODUCT USED FOR UNKNOWN INDICATION
     Dosage: 0.25% BUPIVACAINE WITH EPINEPHRINE 1:100,000
     Route: 058
  3. MIDAZOLAM [Concomitant]
     Active Substance: MIDAZOLAM HYDROCHLORIDE
     Indication: ANAESTHESIA
     Dosage: UNK
     Route: 065
  4. SUFENTANIL [Concomitant]
     Active Substance: SUFENTANIL
     Indication: ANAESTHESIA
     Dosage: UNK
     Route: 065
  5. PROPOFOL. [Concomitant]
     Active Substance: PROPOFOL
     Indication: ANAESTHESIA
     Dosage: UNK
     Route: 065

REACTIONS (2)
  - Ventricular hypokinesia [Recovered/Resolved]
  - Pulmonary oedema [Recovered/Resolved]
